FAERS Safety Report 10375085 (Version 1)
Quarter: 2014Q3

REPORT INFORMATION
  Report Type: Spontaneous
  Country: US (occurrence: None)
  Receive Date: 20140808
  Receipt Date: 20140808
  Transmission Date: 20150326
  Serious: Yes (Life-Threatening, Hospitalization, Disabling)
  Sender: FDA-Public Use
  Company Number: None

PATIENT
  Age: 10 Year
  Sex: Male

DRUGS (1)
  1. AMOXICILLIN. [Suspect]
     Active Substance: AMOXICILLIN
     Indication: EAR INFECTION
     Route: 048
     Dates: start: 20140623, end: 20140624

REACTIONS (4)
  - Corneal lesion [None]
  - Hypophagia [None]
  - Hypersensitivity [None]
  - Lacrimation increased [None]

NARRATIVE: CASE EVENT DATE: 20140623
